FAERS Safety Report 18923028 (Version 1)
Quarter: 2021Q1

REPORT INFORMATION
  Report Type: Spontaneous
  Country: ID (occurrence: ID)
  Receive Date: 20210222
  Receipt Date: 20210222
  Transmission Date: 20210420
  Serious: Yes (Death)
  Sender: FDA-Public Use
  Company Number: NVSC2021ID040717

PATIENT
  Age: 75 Year
  Sex: Female

DRUGS (1)
  1. KRYXANA [Suspect]
     Active Substance: RIBOCICLIB
     Indication: PRODUCT USED FOR UNKNOWN INDICATION
     Dosage: 1 CYCLE, QMO
     Route: 065
     Dates: start: 20210217

REACTIONS (3)
  - Disease progression [Fatal]
  - Respiratory failure [Fatal]
  - Metastases to lung [Fatal]

NARRATIVE: CASE EVENT DATE: 20210217
